FAERS Safety Report 6245822-X (Version None)
Quarter: 2009Q2

REPORT INFORMATION
  Report Type: 
  Country: None (occurrence: None)
  Receive Date: 20090624
  Receipt Date: 20090611
  Transmission Date: 20091009
  Serious: Yes (Other)
  Sender: FDA-Public Use
  Company Number: 235861J08USA

PATIENT
  Age: 27 Year
  Sex: Female

DRUGS (8)
  1. REBIF [Suspect]
     Indication: MULTIPLE SCLEROSIS
     Dosage: 44 MCG, 3 IN 1 WEEKS, SUBCUTANEOUS
     Route: 058
     Dates: start: 20090211
  2. NASONEX [Suspect]
     Dosage: NOT REPORTED, NOT REPORTED, NOT REPORTED
  3. UNSPECIFIED PAIN PATCH (ALL OTHER THERAPEUTIC PRODUCTS) [Suspect]
  4. NEXIUM [Suspect]
  5. PRENAT-F TAB [Suspect]
  6. LIDODERM PATCH (LIDOCAINE /00033401/) [Concomitant]
  7. DRUG TO RELAX MUSCLE (MUSCLE RELAXANT) [Concomitant]
  8. IRON (IRON) [Concomitant]

REACTIONS (3)
  - DRUG EXPOSURE DURING PREGNANCY [None]
  - IDIOPATHIC THROMBOCYTOPENIC PURPURA [None]
  - PREGNANCY [None]
